FAERS Safety Report 7772608-7 (Version None)
Quarter: 2011Q3

REPORT INFORMATION
  Report Type: 
  Country: None (occurrence: None)
  Receive Date: 20110922
  Receipt Date: 20090908
  Transmission Date: 20111222
  Serious: No
  Sender: FDA-Public Use
  Company Number: US-ASTRAZENECA-2009SE11906

PATIENT
  Sex: Female

DRUGS (2)
  1. SEROQUEL XR [Suspect]
     Route: 048
  2. SEIZURE MEDICATION [Concomitant]
     Indication: CONVULSION

REACTIONS (5)
  - INSOMNIA [None]
  - EATING DISORDER [None]
  - WEIGHT INCREASED [None]
  - MENTAL RETARDATION [None]
  - DRUG INEFFECTIVE [None]
